FAERS Safety Report 8632779 (Version 2)
Quarter: 2012Q4

REPORT INFORMATION
  Report Type: 
  Country: US (occurrence: US)
  Receive Date: 20120625
  Receipt Date: 20121030
  Transmission Date: 20130627
  Serious: Yes (Other)
  Sender: FDA-Public Use
  Company Number: US-ROCHE-1080734

PATIENT
  Sex: Female
  Weight: 72.64 kg

DRUGS (1)
  1. ACCUTANE [Suspect]
     Indication: ACNE
     Route: 065
     Dates: start: 1998

REACTIONS (5)
  - Proctitis ulcerative [Unknown]
  - Anxiety [Unknown]
  - Inflammatory bowel disease [Unknown]
  - Intestinal haemorrhage [Unknown]
  - Emotional distress [Unknown]
